FAERS Safety Report 7197705-9 (Version None)
Quarter: 2010Q4

REPORT INFORMATION
  Report Type: 
  Country: None (occurrence: None)
  Receive Date: 20101227
  Receipt Date: 20101215
  Transmission Date: 20110411
  Serious: Yes (Hospitalization)
  Sender: FDA-Public Use
  Company Number: AT-ASTRAZENECA-2010SE59478

PATIENT
  Age: 24854 Day
  Sex: Male

DRUGS (10)
  1. XYLOCAINE [Suspect]
     Route: 065
  2. DAPAGLIFLOZIN CODE NOT BROKEN [Concomitant]
     Indication: TYPE 2 DIABETES MELLITUS
     Dosage: DAILY
     Route: 048
     Dates: start: 20100825
  3. ASPIRIN [Concomitant]
     Indication: CEREBROVASCULAR ACCIDENT
     Route: 048
  4. ASPIRIN [Concomitant]
     Indication: CORONARY ARTERY DISEASE
     Route: 048
  5. SORTIS [Concomitant]
     Indication: HYPERLIPIDAEMIA
     Route: 048
  6. GLUCOPHAGE [Concomitant]
     Indication: DIABETES MELLITUS
     Route: 048
  7. LANTUS [Concomitant]
     Route: 051
     Dates: start: 20100426
  8. NOVORAPID [Concomitant]
     Route: 051
     Dates: start: 20090903
  9. DIOVAN [Concomitant]
     Indication: HYPERTENSION
     Route: 048
  10. CONCOR COR [Concomitant]
     Indication: HYPERTENSION
     Route: 048

REACTIONS (1)
  - BACK PAIN [None]
